FAERS Safety Report 8921012 (Version 1)
Quarter: 2012Q4

REPORT INFORMATION
  Report Type: 
  Country: IT (occurrence: IT)
  Receive Date: 20121123
  Receipt Date: 20121123
  Transmission Date: 20130627
  Serious: Yes (Other)
  Sender: FDA-Public Use
  Company Number: IT-MERCK-1211ITA008876

PATIENT
  Age: 74 Year
  Sex: Female

DRUGS (4)
  1. LORATADINE [Suspect]
     Dosage: 10 mg, qd
     Route: 048
     Dates: start: 20110906
  2. RIVOTRIL [Suspect]
     Dosage: 10 drops, qd
     Route: 048
     Dates: start: 20110906
  3. FENTANYL [Suspect]
     Dosage: UNK, qw
     Route: 062
     Dates: start: 20110715
  4. CYMBALTA [Concomitant]
     Indication: DEPRESSION
     Route: 048

REACTIONS (2)
  - Confusional state [Not Recovered/Not Resolved]
  - Psychomotor retardation [Not Recovered/Not Resolved]
